FAERS Safety Report 4325046-3 (Version None)
Quarter: 2004Q1

REPORT INFORMATION
  Report Type: 
  Country: None (occurrence: None)
  Receive Date: 20040326
  Receipt Date: 20040326
  Transmission Date: 20041129
  Serious: Yes (Life-Threatening, Hospitalization)
  Sender: FDA-Public Use
  Company Number: None

PATIENT
  Age: 80 Year
  Sex: Male
  Weight: 91.173 kg

DRUGS (2)
  1. GATIFLOXACIN [Suspect]
     Indication: URINARY TRACT INFECTION
     Dosage: 400MG QD ORAL
     Route: 048
     Dates: start: 20040123, end: 20040124
  2. LEVOTHYROXINE SODIUM [Concomitant]

REACTIONS (1)
  - CONVULSION [None]
